FAERS Safety Report 14008481 (Version 1)
Quarter: 2017Q3

REPORT INFORMATION
  Report Type: Spontaneous
  Country: US (occurrence: US)
  Receive Date: 20170925
  Receipt Date: 20170925
  Transmission Date: 20171128
  Serious: Yes (Other)
  Sender: FDA-Public Use
  Company Number: US-MYLANLABS-2017M1059432

PATIENT
  Age: 67 Year
  Sex: Male

DRUGS (6)
  1. GEMCITABINE [Suspect]
     Active Substance: GEMCITABINE\GEMCITABINE HYDROCHLORIDE
     Dosage: SINGLE AGENT
     Route: 065
  2. ERLOTINIB [Suspect]
     Active Substance: ERLOTINIB
     Indication: URETHRAL CANCER
     Route: 065
  3. GEMCITABINE [Suspect]
     Active Substance: GEMCITABINE\GEMCITABINE HYDROCHLORIDE
     Indication: URETHRAL CANCER
     Dosage: 21-DAY CYCLE, 6 CYCLES TOTALLY
     Route: 065
  4. CAPECITABINE. [Suspect]
     Active Substance: CAPECITABINE
     Indication: URETHRAL CANCER
     Route: 048
  5. CISPLATIN. [Suspect]
     Active Substance: CISPLATIN
     Indication: URETHRAL CANCER
     Dosage: 21-DAY CYCLE, 6 CYCLES TOTALLY
     Route: 065
  6. OXALIPLATIN. [Suspect]
     Active Substance: OXALIPLATIN
     Indication: URETHRAL CANCER
     Dosage: 130 MG/M2 EVERY 3 WEEKS
     Route: 042

REACTIONS (4)
  - Neuropathy peripheral [Unknown]
  - Dermatitis acneiform [Recovering/Resolving]
  - Performance status decreased [Unknown]
  - Neutropenia [Unknown]
